FAERS Safety Report 12664606 (Version 2)
Quarter: 2016Q3

REPORT INFORMATION
  Report Type: Spontaneous
  Country: US (occurrence: US)
  Receive Date: 20160818
  Receipt Date: 20160819
  Transmission Date: 20161109
  Serious: Yes (Hospitalization, Other)
  Sender: FDA-Public Use
  Company Number: US-ROCHE-1815759

PATIENT
  Sex: Male

DRUGS (1)
  1. TECENTRIQ [Suspect]
     Active Substance: ATEZOLIZUMAB
     Indication: TRANSITIONAL CELL CARCINOMA
     Route: 042

REACTIONS (4)
  - Chest pain [Unknown]
  - Angioedema [Unknown]
  - Renal failure [Unknown]
  - Dyspnoea [Unknown]
